FAERS Safety Report 7506645-4 (Version None)
Quarter: 2011Q2

REPORT INFORMATION
  Report Type: 
  Country: None (occurrence: None)
  Receive Date: 20110526
  Receipt Date: 20110524
  Transmission Date: 20111010
  Serious: Yes (Other)
  Sender: FDA-Public Use
  Company Number: DE-PFIZER INC-2011112592

PATIENT
  Sex: Female
  Weight: 94 kg

DRUGS (1)
  1. LYRICA [Suspect]
     Indication: DEPRESSION
     Dosage: 1-0-2 DF PER DAY
     Route: 048
     Dates: start: 20100601, end: 20101001

REACTIONS (4)
  - SLEEP DISORDER [None]
  - DIZZINESS [None]
  - BLOOD PRESSURE INCREASED [None]
  - NAUSEA [None]
